FAERS Safety Report 4599439-3 (Version None)
Quarter: 2005Q1

REPORT INFORMATION
  Report Type: 
  Country: None (occurrence: None)
  Receive Date: 20050307
  Receipt Date: 20050228
  Transmission Date: 20050727
  Serious: Yes (Life-Threatening)
  Sender: FDA-Public Use
  Company Number: 200510662JP

PATIENT
  Age: 62 Year
  Sex: Male
  Weight: 70 kg

DRUGS (3)
  1. ALLEGRA [Suspect]
     Route: 048
  2. CHINESE HERBAL MEDICINE [Concomitant]
  3. BLOPRESS [Concomitant]

REACTIONS (3)
  - BRADYCARDIA [None]
  - CONVULSION [None]
  - HYPOTENSION [None]
